FAERS Safety Report 6555051-8 (Version None)
Quarter: 2010Q1

REPORT INFORMATION
  Report Type: 
  Country: None (occurrence: None)
  Receive Date: 20100128
  Receipt Date: 20100120
  Transmission Date: 20100710
  Serious: Yes (Hospitalization)
  Sender: FDA-Public Use
  Company Number: US-BIOGENIDEC-2009BI010891

PATIENT
  Age: 65 Year
  Sex: Female

DRUGS (2)
  1. AVONEX [Suspect]
     Indication: MULTIPLE SCLEROSIS
     Route: 030
     Dates: start: 20050517, end: 20090401
  2. AVONEX [Suspect]
     Route: 030
     Dates: start: 20100114

REACTIONS (6)
  - ASTHENIA [None]
  - CONCUSSION [None]
  - FALL [None]
  - HYPONATRAEMIA [None]
  - MUSCLE SPASTICITY [None]
  - SKIN LACERATION [None]
